FAERS Safety Report 6255020-1 (Version None)
Quarter: 2009Q3

REPORT INFORMATION
  Report Type: 
  Country: None (occurrence: None)
  Receive Date: 20090702
  Receipt Date: 20090624
  Transmission Date: 20100115
  Serious: Yes (Hospitalization, Other)
  Sender: FDA-Public Use
  Company Number: US-MERCK-0812USA05362

PATIENT
  Age: 75 Year
  Sex: Female

DRUGS (3)
  1. FOSAMAX [Suspect]
     Indication: OSTEOPOROSIS
     Route: 048
     Dates: start: 19960815
  2. FOSAMAX [Suspect]
     Route: 048
     Dates: start: 20020801, end: 20070701
  3. FLOMAX [Concomitant]
     Route: 065

REACTIONS (48)
  - ANAEMIA [None]
  - ARTHROPATHY [None]
  - ASTHENIA [None]
  - ASTHMA [None]
  - ATAXIA [None]
  - BLINDNESS UNILATERAL [None]
  - BONE DISORDER [None]
  - CHEST PAIN [None]
  - CHRONIC LYMPHOCYTIC LEUKAEMIA [None]
  - CHRONIC OBSTRUCTIVE PULMONARY DISEASE [None]
  - CONSTIPATION [None]
  - DEAFNESS [None]
  - DENTAL CARIES [None]
  - DIVERTICULUM INTESTINAL [None]
  - DRUG INEFFECTIVE [None]
  - EAR DISORDER [None]
  - FLANK PAIN [None]
  - GAIT DISTURBANCE [None]
  - GASTROOESOPHAGEAL REFLUX DISEASE [None]
  - HAEMORRHOIDS [None]
  - HORMONE LEVEL ABNORMAL [None]
  - HYPERTONIC BLADDER [None]
  - INAPPROPRIATE SCHEDULE OF DRUG ADMINISTRATION [None]
  - INCONTINENCE [None]
  - INTESTINAL FUNCTIONAL DISORDER [None]
  - LOWER LIMB FRACTURE [None]
  - MYOPATHY [None]
  - NAUSEA [None]
  - NEUROGENIC BLADDER [None]
  - NEUROPATHY PERIPHERAL [None]
  - NOCTURIA [None]
  - OEDEMA PERIPHERAL [None]
  - OESOPHAGITIS [None]
  - OSTEOARTHRITIS [None]
  - OSTEOMALACIA [None]
  - OSTEONECROSIS [None]
  - OSTEORADIONECROSIS [None]
  - OVARIAN CANCER [None]
  - OVERDOSE [None]
  - PALPITATIONS [None]
  - ROAD TRAFFIC ACCIDENT [None]
  - TREMOR [None]
  - UPPER LIMB FRACTURE [None]
  - URINARY TRACT INFECTION [None]
  - VITAMIN B12 DEFICIENCY [None]
  - VOMITING [None]
  - WEIGHT DECREASED [None]
  - WEIGHT INCREASED [None]
